FAERS Safety Report 11255100 (Version 1)
Quarter: 2015Q3

REPORT INFORMATION
  Report Type: Spontaneous
  Country: US (occurrence: US)
  Receive Date: 20150709
  Receipt Date: 20150709
  Transmission Date: 20151125
  Serious: Yes (Hospitalization)
  Sender: FDA-Public Use
  Company Number: US-BAXTER-2015BAX036605

PATIENT
  Sex: Female

DRUGS (2)
  1. CEFTRIAXONE. [Suspect]
     Active Substance: CEFTRIAXONE
     Indication: RESPIRATORY DISORDER
     Route: 042
     Dates: start: 20150603
  2. 0.9% SODIUM CHLORIDE INJECTION [Suspect]
     Active Substance: SODIUM CHLORIDE
     Indication: RESPIRATORY DISORDER
     Route: 042
     Dates: start: 20150603

REACTIONS (5)
  - Oropharyngeal discomfort [Recovered/Resolved]
  - Abdominal pain [Recovered/Resolved]
  - Chest discomfort [Recovered/Resolved]
  - Urticaria [Recovered/Resolved]
  - Hyperhidrosis [Recovered/Resolved]

NARRATIVE: CASE EVENT DATE: 20150603
